FAERS Safety Report 9485293 (Version 2)
Quarter: 2013Q3

REPORT INFORMATION
  Report Type: Report from Study
  Country: CN (occurrence: CN)
  Receive Date: 20130828
  Receipt Date: 20130828
  Transmission Date: 20140515
  Serious: Yes (Death, Other)
  Sender: FDA-Public Use
  Company Number: CN-ROCHE-1177865

PATIENT
  Age: 64 Year
  Sex: Female
  Weight: 47 kg

DRUGS (2)
  1. PEGASYS [Suspect]
     Indication: HEPATITIS C
     Route: 058
     Dates: start: 20121226, end: 201301
  2. PEGASYS [Suspect]
     Dosage: RESTARTED AT SAME DOSE
     Route: 058
     Dates: start: 20121226

REACTIONS (4)
  - Death [Fatal]
  - Gastrointestinal haemorrhage [Unknown]
  - Diarrhoea [Unknown]
  - Haematochezia [Not Recovered/Not Resolved]
